FAERS Safety Report 12907348 (Version 4)
Quarter: 2016Q4

REPORT INFORMATION
  Report Type: Spontaneous
  Country: IT (occurrence: IT)
  Receive Date: 20161103
  Receipt Date: 20161122
  Transmission Date: 20170207
  Serious: Yes (Other)
  Sender: FDA-Public Use
  Company Number: IT-PFIZER INC-2016511801

PATIENT
  Age: 40 Year
  Sex: Male

DRUGS (4)
  1. BISOPROLOL FUMARATE/HYDROCHLOROTHIAZIDE [Suspect]
     Active Substance: BISOPROLOL FUMARATE\HYDROCHLOROTHIAZIDE
     Indication: DRUG ABUSE
     Dosage: UNK UNK, SINGLE
     Route: 048
     Dates: start: 20160325, end: 20160325
  2. VALDORM /00246102/ [Suspect]
     Active Substance: FLURAZEPAM HYDROCHLORIDE
     Indication: DRUG ABUSE
     Dosage: UNK UNK, SINGLE
     Route: 048
     Dates: start: 20160325, end: 20160325
  3. VALIUM [Suspect]
     Active Substance: DIAZEPAM
     Indication: DRUG ABUSE
     Dosage: UNK UNK, SINGLE
     Route: 048
     Dates: start: 20160325, end: 20160325
  4. DIAZEPAM. [Suspect]
     Active Substance: DIAZEPAM
     Indication: DRUG ABUSE
     Dosage: UNK, SINGLE
     Route: 048
     Dates: start: 20160325, end: 20160325

REACTIONS (2)
  - Drug abuse [Recovered/Resolved]
  - Psychomotor hyperactivity [Recovered/Resolved]

NARRATIVE: CASE EVENT DATE: 20160325
